FAERS Safety Report 4388483-7 (Version None)
Quarter: 2004Q2

REPORT INFORMATION
  Report Type: 
  Country: None (occurrence: None)
  Receive Date: 20040625
  Receipt Date: 20040614
  Transmission Date: 20050107
  Serious: Yes (Other)
  Sender: FDA-Public Use
  Company Number: US-JNJFOC-20040503544

PATIENT
  Age: 51 Year
  Sex: Female
  Weight: 76.6579 kg

DRUGS (4)
  1. REMICADE [Suspect]
     Indication: RHEUMATOID ARTHRITIS
     Dosage: 400 MG, 1 IN 8 WEEK, INTRAVENOUS
     Route: 042
     Dates: start: 20010101
  2. METHOTREXZATE (METHOTREXATE) [Concomitant]
  3. NONSTEROIDAL ANTIINFLAMMATORY (NSAID'S) [Concomitant]
  4. FOLIC ACID [Concomitant]

REACTIONS (3)
  - DYSFUNCTIONAL UTERINE BLEEDING [None]
  - TREATMENT NONCOMPLIANCE [None]
  - UTERINE ADENOCARCINOMA [None]
